FAERS Safety Report 4664579-7 (Version None)
Quarter: 2005Q2

REPORT INFORMATION
  Report Type: 
  Country: None (occurrence: None)
  Receive Date: 20050518
  Receipt Date: 20041203
  Transmission Date: 20051028
  Serious: Yes (Other)
  Sender: FDA-Public Use
  Company Number: GB-GLAXOSMITHKLINE-B0359729A

PATIENT
  Sex: Female

DRUGS (3)
  1. PAROXETINE HCL [Suspect]
     Route: 065
     Dates: start: 20011101, end: 20020408
  2. LORAZEPAM [Concomitant]
     Route: 065
  3. BUSPIRONE HCL [Concomitant]
     Route: 065

REACTIONS (1)
  - SUICIDE ATTEMPT [None]
